FAERS Safety Report 5015983-9 (Version None)
Quarter: 2006Q2

REPORT INFORMATION
  Report Type: 
  Country: None (occurrence: None)
  Receive Date: 20060531
  Receipt Date: 20060531
  Transmission Date: 20061013
  Serious: Yes (Hospitalization)
  Sender: FDA-Public Use
  Company Number: None

PATIENT
  Age: 50 Year
  Sex: Male
  Weight: 72 kg

DRUGS (1)
  1. AFRIN NO DRIP (OXYMETAZOLINE) NASAL SUSPENSION [Suspect]
     Indication: NASAL CONGESTION
     Dosage: NASAL SPRAY
     Route: 045

REACTIONS (3)
  - CARDIAC FIBRILLATION [None]
  - TACHYCARDIA [None]
  - TREATMENT NONCOMPLIANCE [None]
